FAERS Safety Report 9585905 (Version 3)
Quarter: 2013Q4

REPORT INFORMATION
  Report Type: Spontaneous
  Country: US (occurrence: None)
  Receive Date: 20131001
  Receipt Date: 20131121
  Transmission Date: 20140711
  Serious: Yes (Death)
  Sender: FDA-Public Use
  Company Number: 2013-US-0359

PATIENT
  Age: 61 Year
  Sex: Female

DRUGS (1)
  1. SANCUSO 3.1 MG/24 HR [Suspect]
     Indication: PROPHYLAXIS OF NAUSEA AND VOMITING
     Route: 062
     Dates: start: 20130815

REACTIONS (1)
  - Death [None]
